FAERS Safety Report 8396857-2 (Version None)
Quarter: 2012Q2

REPORT INFORMATION
  Report Type: 
  Country: None (occurrence: None)
  Receive Date: 20120530
  Receipt Date: 20120517
  Transmission Date: 20120825
  Serious: Yes (Other)
  Sender: FDA-Public Use
  Company Number: US-BAYER-2012-049670

PATIENT
  Age: 66 Year
  Sex: Male
  Weight: 82 kg

DRUGS (5)
  1. BENAZEPRIL HYDROCHLORIDE [Concomitant]
  2. PEPCID [Concomitant]
  3. VALIUM [Concomitant]
  4. NEO-SYNEPHRINE REGULAR STRENGTH [Suspect]
     Dosage: 1-2 DROPS ONCE DAILY
     Route: 047
     Dates: start: 20120510
  5. GLIMEPIRIDE [Concomitant]

REACTIONS (7)
  - DRY MOUTH [None]
  - ANGER [None]
  - MOBILITY DECREASED [None]
  - COMMUNICATION DISORDER [None]
  - IMPATIENCE [None]
  - DISTURBANCE IN ATTENTION [None]
  - ANXIETY [None]
